FAERS Safety Report 5257798-2 (Version None)
Quarter: 2007Q1

REPORT INFORMATION
  Report Type: 
  Country: None (occurrence: None)
  Receive Date: 20070302
  Receipt Date: 20070221
  Transmission Date: 20070707
  Serious: Yes (Life-Threatening)
  Sender: FDA-Public Use
  Company Number: 07H-056-0312040-00

PATIENT
  Age: 52 Year
  Sex: Male

DRUGS (10)
  1. THIOPENTAL SODIUM [Suspect]
     Indication: EPILEPSY
     Dosage: EVERY DAY, INTRAVENOUS
     Route: 042
     Dates: start: 20061229, end: 20070104
  2. THIOPENTAL SODIUM [Suspect]
     Indication: GRAND MAL CONVULSION
     Dosage: EVERY DAY, INTRAVENOUS
     Route: 042
     Dates: start: 20061229, end: 20070104
  3. THIOPENTAL SODIUM [Suspect]
     Indication: EPILEPSY
     Dosage: EVERY DAY, INTRAVENOUS
     Route: 042
     Dates: start: 20070109
  4. THIOPENTAL SODIUM [Suspect]
     Indication: GRAND MAL CONVULSION
     Dosage: EVERY DAY, INTRAVENOUS
     Route: 042
     Dates: start: 20070109
  5. KEPPRA [Suspect]
     Indication: EPILEPSY
     Dosage: EVERY DAY, INTRAVENOUS
     Route: 042
     Dates: start: 20070109
  6. KEPPRA [Suspect]
     Indication: GRAND MAL CONVULSION
     Dosage: EVERY DAY, INTRAVENOUS
     Route: 042
     Dates: start: 20070109
  7. DEPAKENE [Concomitant]
  8. CLONAZEPAM [Concomitant]
  9. FOSPHENYTOIN SODIUM [Concomitant]
  10. GARDENAL (PHENOBARBITAL SODIUM) [Concomitant]

REACTIONS (4)
  - FLUID OVERLOAD [None]
  - HYPONATRAEMIA [None]
  - STATUS EPILEPTICUS [None]
  - SUBDURAL HAEMATOMA [None]
